FAERS Safety Report 17429995 (Version 1)
Quarter: 2020Q1

REPORT INFORMATION
  Report Type: Spontaneous
  Country: US (occurrence: US)
  Receive Date: 20200203
  Receipt Date: 20200203
  Transmission Date: 20200409
  Serious: Yes (Hospitalization, Other)
  Sender: FDA-Public Use
  Company Number: None

PATIENT
  Age: 67 Year

DRUGS (2)
  1. IBRANCE [Suspect]
     Active Substance: PALBOCICLIB
     Indication: BREAST CANCER
     Route: 048
     Dates: start: 20180116
  2. LOSARTAN POT [Concomitant]
     Active Substance: LOSARTAN POTASSIUM

REACTIONS (1)
  - Colitis [None]

NARRATIVE: CASE EVENT DATE: 20200125
